FAERS Safety Report 4345997-3 (Version None)
Quarter: 2004Q2

REPORT INFORMATION
  Report Type: 
  Country: None (occurrence: None)
  Receive Date: 20040426
  Receipt Date: 20040309
  Transmission Date: 20050107
  Serious: Yes (Disabling, Other)
  Sender: FDA-Public Use
  Company Number: PHEH2004US02888

PATIENT
  Age: 46 Year
  Sex: Female
  Weight: 47 kg

DRUGS (4)
  1. GLEEVEC [Suspect]
     Indication: GASTROINTESTINAL STROMAL TUMOUR
     Dosage: 600 MG, QD
     Route: 048
  2. GLEEVEC [Suspect]
     Dosage: 800 MG, QD
     Route: 048
  3. LORAZEPAM [Concomitant]
     Indication: NAUSEA
     Dosage: 1 MG, Q6H PRN
     Route: 048
  4. ALPRAZOLAM [Concomitant]
     Dosage: .25 MG, PRN
     Route: 048

REACTIONS (10)
  - ASTHENIA [None]
  - DECREASED APPETITE [None]
  - DIARRHOEA [None]
  - HYDRONEPHROSIS [None]
  - MALABSORPTION [None]
  - MALIGNANT NEOPLASM PROGRESSION [None]
  - MARKEDLY REDUCED DIETARY INTAKE [None]
  - NEOPLASM PROGRESSION [None]
  - SHORT-BOWEL SYNDROME [None]
  - WEIGHT DECREASED [None]
